FAERS Safety Report 8831030 (Version 1)
Quarter: 2012Q4

REPORT INFORMATION
  Report Type: 
  Country: US (occurrence: US)
  Receive Date: 20121008
  Receipt Date: 20121008
  Transmission Date: 20130627
  Serious: Yes (Hospitalization)
  Sender: FDA-Public Use
  Company Number: US-NOVOPROD-361393

PATIENT
  Age: 61 Year
  Sex: Female
  Weight: 86.17 kg

DRUGS (1)
  1. LEVEMIR [Suspect]
     Indication: TYPE 2 DIABETES MELLITUS
     Dosage: 60 U in am/ 60 U in pm
     Route: 058
     Dates: start: 201207

REACTIONS (2)
  - Coronary artery bypass [Recovering/Resolving]
  - Blood glucose decreased [Recovered/Resolved]
